FAERS Safety Report 8720425 (Version 3)
Quarter: 2012Q4

REPORT INFORMATION
  Report Type: 
  Country: JP (occurrence: JP)
  Receive Date: 20120813
  Receipt Date: 20120907
  Transmission Date: 20130627
  Serious: Yes (Life-Threatening, Other)
  Sender: FDA-Public Use
  Company Number: JP-ROCHE-1086123

PATIENT
  Age: 73 Year
  Sex: Male
  Weight: 62 kg

DRUGS (9)
  1. HERCEPTIN [Suspect]
     Indication: METASTATIC GASTRIC CANCER
     Dosage: 8.85mg/kg
     Route: 041
     Dates: start: 20120704, end: 20120704
  2. XELODA [Suspect]
     Indication: METASTATIC GASTRIC CANCER
     Route: 048
     Dates: start: 20120704, end: 20120704
  3. TAKEPRON [Concomitant]
     Route: 048
     Dates: start: 20120206
  4. MAGLAX [Concomitant]
     Indication: CONSTIPATION
     Route: 048
     Dates: start: 20120224
  5. CALONAL [Concomitant]
     Indication: TUMOUR ASSOCIATED FEVER
     Route: 048
     Dates: start: 20120416
  6. FERROMIA [Concomitant]
     Route: 048
     Dates: start: 20120515
  7. PROMAC [Concomitant]
     Indication: DYSGEUSIA
     Route: 048
     Dates: start: 20120530
  8. HOCHUEKKITO [Concomitant]
     Indication: DECREASED APPETITE
     Route: 048
     Dates: start: 20120606, end: 201208
  9. ALLOID G [Concomitant]
     Route: 048
     Dates: start: 20120206, end: 201203

REACTIONS (6)
  - Infusion related reaction [Recovering/Resolving]
  - Respiratory failure [Recovering/Resolving]
  - Diarrhoea [Recovered/Resolved]
  - Anaemia [Recovering/Resolving]
  - Pruritus [Recovered/Resolved]
  - Pruritus [Recovering/Resolving]
